FAERS Safety Report 12234995 (Version 1)
Quarter: 2016Q2

REPORT INFORMATION
  Report Type: Spontaneous
  Country: US (occurrence: US)
  Receive Date: 20160404
  Receipt Date: 20160404
  Transmission Date: 20160815
  Serious: Yes (Other)
  Sender: FDA-Public Use
  Company Number: US-TEVA-572433USA

PATIENT
  Age: 60 Year
  Sex: Female

DRUGS (3)
  1. WARFARIN [Suspect]
     Active Substance: WARFARIN
     Indication: ATRIAL FIBRILLATION
     Route: 065
  2. XARELTO [Suspect]
     Active Substance: RIVAROXABAN
     Route: 065
  3. WARFARIN [Suspect]
     Active Substance: WARFARIN
     Indication: CEREBROVASCULAR ACCIDENT PROPHYLAXIS
     Route: 065

REACTIONS (3)
  - Contusion [Unknown]
  - Drug ineffective [Unknown]
  - Haemorrhage [Unknown]
